FAERS Safety Report 8661013 (Version 3)
Quarter: 2012Q4

REPORT INFORMATION
  Report Type: Report from Study
  Country: JP (occurrence: JP)
  Receive Date: 20120711
  Receipt Date: 20120912
  Transmission Date: 20130627
  Serious: Yes (Other)
  Sender: FDA-Public Use
  Company Number: JP-JNJFOC-20120704144

PATIENT
  Age: 60 Year
  Sex: Female
  Weight: 45 kg

DRUGS (22)
  1. GOLIMUMAB [Suspect]
     Indication: RHEUMATOID ARTHRITIS
     Route: 058
     Dates: start: 20111017
  2. GOLIMUMAB [Suspect]
     Indication: RHEUMATOID ARTHRITIS
     Route: 058
     Dates: start: 20111114
  3. GOLIMUMAB [Suspect]
     Indication: RHEUMATOID ARTHRITIS
     Route: 058
     Dates: start: 20111130, end: 20111212
  4. METHOTREXATE [Concomitant]
     Indication: RHEUMATOID ARTHRITIS
     Route: 048
     Dates: end: 20111130
  5. PREDONINE [Concomitant]
     Indication: RHEUMATOID ARTHRITIS
     Route: 048
     Dates: start: 20111017, end: 20120618
  6. PREDONINE [Concomitant]
     Indication: RHEUMATOID ARTHRITIS
     Route: 048
     Dates: start: 20110930, end: 20111016
  7. PREDONINE [Concomitant]
     Indication: RHEUMATOID ARTHRITIS
     Route: 048
     Dates: start: 20120619
  8. LOXONIN [Concomitant]
     Indication: RHEUMATOID ARTHRITIS
     Route: 048
     Dates: end: 20120206
  9. XYZAL [Concomitant]
     Route: 048
  10. KLARICID [Concomitant]
     Route: 048
  11. SELBEX [Concomitant]
     Indication: PROPHYLAXIS
     Route: 048
  12. MYSLEE [Concomitant]
     Route: 048
  13. FOLIAMIN [Concomitant]
     Indication: PROPHYLAXIS
     Route: 048
  14. RECALBON [Concomitant]
     Route: 048
  15. ARTIST [Concomitant]
     Indication: CARDIAC FAILURE CHRONIC
     Route: 048
  16. PROGRAF [Concomitant]
     Indication: RHEUMATOID ARTHRITIS
  17. NEXIUM [Concomitant]
     Indication: PROPHYLAXIS
     Route: 048
  18. ENZYME PREPARATIONS [Concomitant]
     Indication: PROPHYLAXIS
     Route: 048
  19. OPALMON [Concomitant]
     Indication: PROPHYLAXIS
     Route: 048
  20. SELOKEN (METOPROLOL TARTRATE) [Concomitant]
     Indication: PROPHYLAXIS
     Route: 048
  21. HALIZON [Concomitant]
     Indication: PROPHYLAXIS
     Route: 048
  22. HIRUDOID (HEPARINOID) [Concomitant]
     Indication: PROPHYLAXIS
     Route: 062

REACTIONS (2)
  - Interstitial lung disease [Recovered/Resolved]
  - Upper respiratory tract infection [Recovered/Resolved]
